FAERS Safety Report 18539488 (Version 1)
Quarter: 2020Q4

REPORT INFORMATION
  Report Type: Spontaneous
  Country: FR (occurrence: FR)
  Receive Date: 20201124
  Receipt Date: 20201124
  Transmission Date: 20210114
  Serious: Yes (Other)
  Sender: FDA-Public Use
  Company Number: US-BRAINTREE LABORATORIES-200399-2

PATIENT
  Age: 65 Year
  Sex: Female
  Weight: 58 kg

DRUGS (1)
  1. EZICLEN [Suspect]
     Active Substance: MAGNESIUM SULFATE\POTASSIUM SULFATE\SODIUM SULFATE
     Indication: COLONOSCOPY
     Dosage: 2 X 6 OZ. BOTTLE
     Route: 048
     Dates: start: 20200922, end: 20200922

REACTIONS (12)
  - Feeling abnormal [None]
  - Presyncope [None]
  - Depression [None]
  - Headache [None]
  - Dizziness [None]
  - Wrong technique in product usage process [None]
  - Vomiting [None]
  - Decreased appetite [None]
  - Weight decreased [None]
  - Muscular weakness [None]
  - Blood pressure decreased [None]
  - Nausea [None]

NARRATIVE: CASE EVENT DATE: 20200928
